FAERS Safety Report 6251246-1 (Version None)
Quarter: 2009Q2

REPORT INFORMATION
  Report Type: 
  Country: None (occurrence: None)
  Receive Date: 20090626
  Receipt Date: 20090617
  Transmission Date: 20091009
  Serious: Yes (Other)
  Sender: FDA-Public Use
  Company Number: GXKR2009DE07052

PATIENT
  Age: 13 Year
  Sex: Female

DRUGS (3)
  1. COTRIM [Suspect]
     Dosage: 2 DF, TIW, ORAL
     Route: 048
  2. ACYCLOVIR [Concomitant]
  3. CIPROFLOXACIN [Concomitant]

REACTIONS (1)
  - TOXIC ENCEPHALOPATHY [None]
